FAERS Safety Report 5484685-7 (Version None)
Quarter: 2007Q4

REPORT INFORMATION
  Report Type: 
  Country: None (occurrence: None)
  Receive Date: 20071012
  Receipt Date: 20071001
  Transmission Date: 20080405
  Serious: Yes (Other)
  Sender: FDA-Public Use
  Company Number: FR-PFIZER INC-2007083159

PATIENT
  Age: 75 Year
  Sex: Female

DRUGS (11)
  1. AROMASIN [Suspect]
     Indication: BREAST CANCER METASTATIC
     Route: 048
  2. LYRICA [Suspect]
     Indication: NEUROPATHY
     Route: 048
  3. ZOMETA [Suspect]
     Indication: BREAST CANCER METASTATIC
     Route: 042
     Dates: start: 20050901, end: 20070630
  4. PERINDOPRIL ERBUMINE [Suspect]
     Indication: HYPERTENSION
     Route: 048
  5. KREDEX [Suspect]
     Route: 048
  6. LEVOTHYROX [Suspect]
     Indication: HYPOTHYROIDISM
     Route: 048
  7. PLAVIX [Suspect]
     Indication: ARTERITIS
     Route: 048
  8. CORTANCYL [Suspect]
     Indication: RHEUMATOID ARTHRITIS
     Dosage: DAILY DOSE:15MG-FREQ:FREQUENCY: DAILY
     Route: 048
  9. CALCIDOSE [Concomitant]
     Indication: OSTEOPOROSIS
  10. DIFFU K [Concomitant]
  11. TARDYFERON [Concomitant]

REACTIONS (1)
  - OSTEONECROSIS [None]
